FAERS Safety Report 6907171-3 (Version None)
Quarter: 2010Q3

REPORT INFORMATION
  Report Type: 
  Country: None (occurrence: None)
  Receive Date: 20100804
  Receipt Date: 20090910
  Transmission Date: 20110219
  Serious: Yes (Other)
  Sender: FDA-Public Use
  Company Number: US-PFIZER INC-2009244234

PATIENT
  Sex: Female
  Weight: 57.7 kg

DRUGS (2)
  1. DOXORUBICIN HCL [Suspect]
     Indication: BONE SARCOMA
     Dosage: 37.5 MG/M2, 62 MG, 12 DOSES (2 DOSES GIVEN EVERY 6-8 WEEKS)
     Route: 042
     Dates: start: 20081107
  2. CISPLATIN [Concomitant]
     Dosage: UNK
     Dates: start: 20081107, end: 20090404

REACTIONS (1)
  - EJECTION FRACTION DECREASED [None]
